FAERS Safety Report 21082426 (Version 1)
Quarter: 2022Q3

REPORT INFORMATION
  Report Type: Spontaneous
  Country: PT (occurrence: PT)
  Receive Date: 20220714
  Receipt Date: 20220714
  Transmission Date: 20221026
  Serious: Yes (Death, Other)
  Sender: FDA-Public Use
  Company Number: PT-SLATE RUN PHARMACEUTICALS-22PT001199

PATIENT

DRUGS (2)
  1. VORICONAZOLE [Suspect]
     Active Substance: VORICONAZOLE
     Indication: Bronchopulmonary aspergillosis
     Dosage: UNK
  2. UNSPECIFIED INGREDIENT [Concomitant]
     Active Substance: UNSPECIFIED INGREDIENT
     Indication: Evidence based treatment

REACTIONS (5)
  - Pulmonary haemorrhage [Fatal]
  - Respiratory failure [Unknown]
  - Sarcopenia [Unknown]
  - Treatment failure [Unknown]
  - Haemoptysis [Unknown]
